FAERS Safety Report 24676009 (Version 1)
Quarter: 2024Q4

REPORT INFORMATION
  Report Type: Spontaneous
  Country: DE (occurrence: DE)
  Receive Date: 20241128
  Receipt Date: 20241128
  Transmission Date: 20250115
  Serious: Yes (Hospitalization, Other)
  Sender: TEVA
  Company Number: None

PATIENT
  Age: 61 Year
  Sex: Female
  Weight: 55 kg

DRUGS (4)
  1. PREDNISOLONE [Suspect]
     Active Substance: PREDNISOLONE
     Indication: Bronchitis chronic
     Dosage: DAILY
     Route: 048
     Dates: start: 2017, end: 2024
  2. DUPIXENT [Suspect]
     Active Substance: DUPILUMAB
     Indication: Dermatitis atopic
     Dosage: 300MG, SYRINGE OR PEN, EVERY 14 DAYS
     Route: 058
     Dates: start: 2022, end: 2024
  3. DUPIXENT [Suspect]
     Active Substance: DUPILUMAB
     Indication: Dermatitis atopic
     Dosage: 300MG, SYRINGE OR PEN, EVERY 14 DAYS
     Route: 058
     Dates: start: 2022, end: 2024
  4. FOSTER [Suspect]
     Active Substance: BECLOMETHASONE\FORMOTEROL
     Indication: Chronic obstructive pulmonary disease
     Dosage: 200 MICROGRAMS/6 MICROGRAMS PER INHALATION PRESSURIZED GAS INHALATION, SOLUTION
     Route: 065
     Dates: start: 2022, end: 2024

REACTIONS (9)
  - Angina pectoris [Not Recovered/Not Resolved]
  - Aggression [Not Recovered/Not Resolved]
  - Nervousness [Not Recovered/Not Resolved]
  - Tremor [Not Recovered/Not Resolved]
  - Helplessness [Not Recovered/Not Resolved]
  - Feeling guilty [Not Recovered/Not Resolved]
  - Restlessness [Not Recovered/Not Resolved]
  - Tremor [Not Recovered/Not Resolved]
  - Anxiety [Not Recovered/Not Resolved]

NARRATIVE: CASE EVENT DATE: 20220101
